FAERS Safety Report 8467816-6 (Version None)
Quarter: 2012Q2

REPORT INFORMATION
  Report Type: 
  Country: None (occurrence: None)
  Receive Date: 20120626
  Receipt Date: 20100806
  Transmission Date: 20120825
  Serious: Yes (Hospitalization, Disabling)
  Sender: FDA-Public Use
  Company Number: US-GLAXOSMITHKLINE-A0875831A

PATIENT
  Age: 84 Year
  Sex: Female

DRUGS (8)
  1. AVANDIA [Suspect]
     Indication: DIABETES MELLITUS
     Dosage: 8MG AT NIGHT
     Route: 048
     Dates: start: 20040420
  2. DYAZIDE [Concomitant]
  3. SYNTHROID [Concomitant]
  4. ADVAIR DISKUS 100/50 [Concomitant]
  5. CELEBREX [Concomitant]
  6. ZOCOR [Concomitant]
  7. PAXIL [Concomitant]
  8. HUMALOG [Concomitant]

REACTIONS (2)
  - ATRIAL FIBRILLATION [None]
  - CARDIAC DISORDER [None]
